FAERS Safety Report 8198273-5 (Version None)
Quarter: 2012Q1

REPORT INFORMATION
  Report Type: 
  Country: None (occurrence: None)
  Receive Date: 20120309
  Receipt Date: 20120302
  Transmission Date: 20120608
  Serious: Yes (Hospitalization)
  Sender: FDA-Public Use
  Company Number: PHHY2012AU015386

PATIENT
  Sex: Male

DRUGS (2)
  1. CLOZARIL [Suspect]
     Dosage: 25 MG, UNK
  2. CLOZARIL [Suspect]
     Dosage: 12.5 MG, UNK
     Dates: start: 20051031

REACTIONS (2)
  - MALAISE [None]
  - MENINGITIS BACTERIAL [None]
